FAERS Safety Report 25957849 (Version 1)
Quarter: 2025Q4

REPORT INFORMATION
  Report Type: Spontaneous
  Country: US (occurrence: US)
  Receive Date: 20251024
  Receipt Date: 20251024
  Transmission Date: 20260118
  Serious: No
  Sender: GALPHARM INTERNATIONAL
  Company Number: US-PERRIGO-25US000646

PATIENT

DRUGS (2)
  1. NICOTINE POLACRILEX [Suspect]
     Active Substance: NICOTINE
     Indication: Smoking cessation therapy
     Dosage: UNKNOWN, UNKNOWN
     Route: 002
  2. NICOTINE POLACRILEX [Suspect]
     Active Substance: NICOTINE
     Dosage: UNKNOWN, UNKNOWN
     Route: 002

REACTIONS (1)
  - Dyspnoea [Not Recovered/Not Resolved]
